FAERS Safety Report 21063292 (Version 3)
Quarter: 2023Q2

REPORT INFORMATION
  Report Type: Spontaneous
  Country: CA (occurrence: CA)
  Receive Date: 20220711
  Receipt Date: 20230414
  Transmission Date: 20230721
  Serious: Yes (Death, Other)
  Sender: FDA-Public Use
  Company Number: CA-SAMSUNG BIOEPIS-SB-2022-16382

PATIENT
  Age: 50 Year
  Sex: Female
  Weight: 66 kg

DRUGS (8)
  1. INFLIXIMAB [Suspect]
     Active Substance: INFLIXIMAB
     Indication: Colitis ulcerative
     Route: 042
  2. INFLIXIMAB [Suspect]
     Active Substance: INFLIXIMAB
     Indication: Ankylosing spondylitis
     Route: 042
  3. ROBAXACET [Concomitant]
     Active Substance: ACETAMINOPHEN\METHOCARBAMOL
     Indication: Pain
     Dosage: AS REQUIRED
     Route: 065
  4. ROBAXACET [Concomitant]
     Active Substance: ACETAMINOPHEN\METHOCARBAMOL
     Indication: Arthralgia
  5. SULFASALAZINE [Concomitant]
     Active Substance: SULFASALAZINE
     Indication: Product used for unknown indication
     Route: 065
  6. SULFASALAZINE [Concomitant]
     Active Substance: SULFASALAZINE
     Route: 065
  7. ENTYVIO [Concomitant]
     Active Substance: VEDOLIZUMAB
     Indication: Ankylosing spondylitis
     Route: 065
  8. ENTYVIO [Concomitant]
     Active Substance: VEDOLIZUMAB
     Route: 065

REACTIONS (13)
  - Back pain [Fatal]
  - COVID-19 [Fatal]
  - Cerebrovascular accident [Fatal]
  - Condition aggravated [Fatal]
  - Herpes zoster [Fatal]
  - Musculoskeletal stiffness [Fatal]
  - Neck pain [Fatal]
  - Pain [Fatal]
  - Skin lesion [Fatal]
  - Tooth infection [Fatal]
  - Contraindicated product prescribed [Fatal]
  - Product use issue [Fatal]
  - Off label use [Fatal]
